FAERS Safety Report 9186225 (Version 1)
Quarter: 2013Q1

REPORT INFORMATION
  Report Type: Spontaneous
  Country: US (occurrence: US)
  Receive Date: 20130325
  Receipt Date: 20130325
  Transmission Date: 20140127
  Serious: No
  Sender: FDA-Public Use
  Company Number: US-BAYER-2013-032958

PATIENT
  Age: 63 Year
  Sex: Female
  Weight: 58.96 kg

DRUGS (4)
  1. BETASERON [Suspect]
     Dosage: 0.25 MG, QOD
     Route: 058
  2. OXYBUTYNIN [Concomitant]
  3. ASPIRIN [Concomitant]
  4. SENIOR VITES [Concomitant]

REACTIONS (4)
  - Influenza like illness [Unknown]
  - Pain [Unknown]
  - Chills [Unknown]
  - Drug dose omission [Unknown]
